FAERS Safety Report 7117030 (Version 5)
Quarter: 2014Q3

REPORT INFORMATION
  Report Type: Spontaneous
  Country: DE (occurrence: DE)
  Receive Date: 20090917
  Receipt Date: 20140910
  Transmission Date: 20150326
  Serious: Yes (Other)
  Sender: FDA-Public Use
  Company Number: DE-JNJFOC-20090903582

PATIENT
  Sex: Male

DRUGS (28)
  1. TAVOR [Concomitant]
     Active Substance: LORAZEPAM
     Route: 048
     Dates: start: 20040312
  2. TAVOR [Concomitant]
     Active Substance: LORAZEPAM
     Route: 048
     Dates: start: 20040129, end: 20040129
  3. TRUXAL [Concomitant]
     Active Substance: CHLORPROTHIXENE
     Dates: start: 20040416
  4. RISPERDAL [Suspect]
     Active Substance: RISPERIDONE
     Indication: SCHIZOPHRENIA, PARANOID TYPE
     Dosage: 2MG-3MG-2MG
     Route: 065
     Dates: start: 20040329
  5. ZOPICLON [Concomitant]
     Active Substance: ZOPICLONE
     Dosage: 7.5 MG AT NIGHT
     Route: 048
     Dates: start: 20040312
  6. ZOPICLON [Concomitant]
     Active Substance: ZOPICLONE
     Dosage: 7.5 MG HALF TABLET (3.75 MG) AT NIGHT
     Route: 048
     Dates: start: 20040329
  7. BIPERIDEN [Concomitant]
     Active Substance: BIPERIDEN
     Indication: EXTRAPYRAMIDAL DISORDER
     Dosage: IN THE MORNING
     Route: 048
     Dates: start: 20040312
  8. VALIQUID [Concomitant]
     Active Substance: DIAZEPAM
     Dates: start: 20041129
  9. RISPERDAL [Suspect]
     Active Substance: RISPERIDONE
     Indication: SCHIZOPHRENIA, PARANOID TYPE
     Route: 065
     Dates: start: 20040202
  10. BIPERIDEN [Concomitant]
     Active Substance: BIPERIDEN
     Indication: EXTRAPYRAMIDAL DISORDER
     Route: 048
     Dates: start: 200410
  11. AMBROXOL [Concomitant]
     Active Substance: AMBROXOL
     Route: 065
     Dates: start: 200410
  12. EMSER SOLE [Concomitant]
     Route: 055
     Dates: start: 200410
  13. TRUXAL [Concomitant]
     Active Substance: CHLORPROTHIXENE
     Dates: start: 20040129, end: 20040129
  14. RISPERDAL [Suspect]
     Active Substance: RISPERIDONE
     Indication: SCHIZOPHRENIA, PARANOID TYPE
     Route: 065
     Dates: start: 20041208, end: 2006
  15. BIPERIDEN [Concomitant]
     Active Substance: BIPERIDEN
     Indication: EXTRAPYRAMIDAL DISORDER
     Route: 048
     Dates: start: 20040416
  16. BIPERIDEN [Concomitant]
     Active Substance: BIPERIDEN
     Indication: EXTRAPYRAMIDAL DISORDER
     Dosage: HOSPITAL ADMISSION DATE
     Route: 048
     Dates: start: 20041129
  17. RISPERDAL [Suspect]
     Active Substance: RISPERIDONE
     Indication: SCHIZOPHRENIA, PARANOID TYPE
     Route: 065
     Dates: start: 20040331
  18. HALDOL [Concomitant]
     Active Substance: HALOPERIDOL
     Indication: SCHIZOPHRENIA, PARANOID TYPE
     Route: 048
     Dates: start: 20040129, end: 20040129
  19. TAVOR [Concomitant]
     Active Substance: LORAZEPAM
     Route: 048
     Dates: start: 200402
  20. BIPERIDEN [Concomitant]
     Active Substance: BIPERIDEN
     Indication: EXTRAPYRAMIDAL DISORDER
     Dosage: IN THE MORNING
     Route: 048
     Dates: start: 20041208
  21. BERLINSULIN H NORMAL [Concomitant]
     Active Substance: INSULIN NOS
     Indication: DIABETES MELLITUS
     Route: 050
     Dates: start: 200512, end: 200903
  22. RISPERDAL [Suspect]
     Active Substance: RISPERIDONE
     Indication: SCHIZOPHRENIA, PARANOID TYPE
     Dosage: 2MG-0-3MG
     Route: 065
     Dates: start: 20040416
  23. RISPERDAL [Suspect]
     Active Substance: RISPERIDONE
     Indication: SCHIZOPHRENIA, PARANOID TYPE
     Dosage: 2 MG-1MG-2MG
     Route: 065
     Dates: start: 20040312
  24. BIPERIDEN [Concomitant]
     Active Substance: BIPERIDEN
     Indication: EXTRAPYRAMIDAL DISORDER
     Route: 048
     Dates: start: 20040329
  25. IMPROMEN [Concomitant]
     Active Substance: BROMPERIDOL
     Indication: ANXIETY
     Route: 065
     Dates: start: 2004, end: 2004
  26. VALIQUID [Concomitant]
     Active Substance: DIAZEPAM
     Dates: start: 20040331
  27. RISPERDAL [Suspect]
     Active Substance: RISPERIDONE
     Indication: SCHIZOPHRENIA, PARANOID TYPE
     Route: 065
     Dates: start: 20041129
  28. ZOLOFT [Concomitant]
     Active Substance: SERTRALINE HYDROCHLORIDE
     Route: 048
     Dates: start: 200410

REACTIONS (1)
  - Type 1 diabetes mellitus [Not Recovered/Not Resolved]
